FAERS Safety Report 17416347 (Version 1)
Quarter: 2020Q1

REPORT INFORMATION
  Report Type: Spontaneous
  Country: US (occurrence: US)
  Receive Date: 20200213
  Receipt Date: 20200213
  Transmission Date: 20200409
  Serious: Yes (Other)
  Sender: FDA-Public Use
  Company Number: None

PATIENT
  Age: 79 Year
  Sex: Male
  Weight: 79.65 kg

DRUGS (3)
  1. LENALIDOMIDE [Suspect]
     Active Substance: LENALIDOMIDE
     Indication: PLASMA CELL MYELOMA
     Route: 048
     Dates: start: 20190201, end: 20190403
  2. DEXAMETHASONE. [Suspect]
     Active Substance: DEXAMETHASONE
  3. BORTEZOMIB. [Suspect]
     Active Substance: BORTEZOMIB

REACTIONS (4)
  - Alanine aminotransferase increased [None]
  - Hepatitis B reactivation [None]
  - Plasma cell myeloma recurrent [None]
  - Aspartate aminotransferase increased [None]

NARRATIVE: CASE EVENT DATE: 20191023
